FAERS Safety Report 8784072 (Version 1)
Quarter: 2012Q4

REPORT INFORMATION
  Report Type: Spontaneous
  Country: US (occurrence: None)
  Receive Date: 20120829
  Receipt Date: 20120829
  Transmission Date: 20130627
  Serious: Yes (Hospitalization)
  Sender: FDA-Public Use
  Company Number: UCM201208-000070

PATIENT
  Age: 21 Year
  Sex: Female

DRUGS (6)
  1. MELOXICAM [Suspect]
  2. ALLOPURINOL [Suspect]
     Indication: URIC ACID HIGH
  3. CIPROFLOXACIN [Suspect]
     Indication: URINARY TRACT INFECTION
  4. AMOXICILLIN AND CALVULANATE POTASSIUM [Suspect]
  5. DIPHENHYDRAMINE [Suspect]
     Indication: PRURITUS
     Route: 061
  6. TOBRAMYCIN [Suspect]
     Route: 047

REACTIONS (26)
  - Toxic epidermal necrolysis [None]
  - Systemic lupus erythematosus [None]
  - Haemolytic anaemia [None]
  - Blister [None]
  - Treatment noncompliance [None]
  - Confusional state [None]
  - Diarrhoea [None]
  - Fatigue [None]
  - Neutropenia [None]
  - Urinary tract infection [None]
  - Vulvovaginal mycotic infection [None]
  - Productive cough [None]
  - Haemoptysis [None]
  - Sputum discoloured [None]
  - Vomiting [None]
  - Pyrexia [None]
  - Tachycardia [None]
  - Tachypnoea [None]
  - Mucosal dryness [None]
  - Rales [None]
  - Alopecia [None]
  - Blood bicarbonate decreased [None]
  - Transaminases increased [None]
  - Fluid overload [None]
  - Acute respiratory distress syndrome [None]
  - Pericardial effusion [None]
